FAERS Safety Report 7535695-7 (Version None)
Quarter: 2011Q2

REPORT INFORMATION
  Report Type: 
  Country: None (occurrence: None)
  Receive Date: 20110602
  Receipt Date: 20110526
  Transmission Date: 20111010
  Serious: Yes (Other)
  Sender: FDA-Public Use
  Company Number: 2011SP024593

PATIENT
  Age: 34 Year
  Sex: Female

DRUGS (3)
  1. PROZAC [Concomitant]
  2. KLONOPIN [Concomitant]
  3. SAPHRIS [Suspect]
     Indication: BIPOLAR DISORDER

REACTIONS (5)
  - LOSS OF CONSCIOUSNESS [None]
  - HEAD INJURY [None]
  - AMNESIA [None]
  - NERVE INJURY [None]
  - HAEMORRHAGE [None]
